FAERS Safety Report 14109212 (Version 1)
Quarter: 2017Q4

REPORT INFORMATION
  Report Type: Report from Study
  Country: US (occurrence: US)
  Receive Date: 20171019
  Receipt Date: 20171019
  Transmission Date: 20180321
  Serious: Yes (Hospitalization, Other)
  Sender: FDA-Public Use
  Company Number: US-EXELIXIS-CABO-17010874

PATIENT
  Age: 78 Year
  Sex: Female

DRUGS (1)
  1. COMETRIQ [Suspect]
     Active Substance: CABOZANTINIB S-MALATE
     Indication: THYROID CANCER
     Dosage: 140 MG, QD
     Route: 048
     Dates: start: 20170922, end: 20170929

REACTIONS (9)
  - Amnesia [Unknown]
  - Dyspnoea [Unknown]
  - Myocardial infarction [Unknown]
  - Contusion [Unknown]
  - Confusional state [Unknown]
  - Skin exfoliation [Unknown]
  - Diarrhoea [Unknown]
  - Haematemesis [Unknown]
  - Peripheral swelling [Unknown]

NARRATIVE: CASE EVENT DATE: 20170929
